FAERS Safety Report 14379138 (Version 2)
Quarter: 2018Q1

REPORT INFORMATION
  Report Type: Spontaneous
  Country: US (occurrence: US)
  Receive Date: 20180112
  Receipt Date: 20180131
  Transmission Date: 20180509
  Serious: No
  Sender: FDA-Public Use
  Company Number: US-ASTRAZENECA-2018SE03586

PATIENT
  Age: 963 Month
  Sex: Female
  Weight: 64.4 kg

DRUGS (3)
  1. SYMBICORT [Suspect]
     Active Substance: BUDESONIDE\FORMOTEROL FUMARATE DIHYDRATE
     Indication: EMPHYSEMA
     Dosage: 80/4.5 UG, TWO INHALATIONS, TWO TIMES A DAY
     Route: 055
     Dates: start: 2016
  2. SYMBICORT [Suspect]
     Active Substance: BUDESONIDE\FORMOTEROL FUMARATE DIHYDRATE
     Indication: ASTHMA
     Dosage: 80/4.5 UG, TWO INHALATIONS, TWO TIMES A DAY
     Route: 055
     Dates: start: 2016
  3. SYMBICORT [Suspect]
     Active Substance: BUDESONIDE\FORMOTEROL FUMARATE DIHYDRATE
     Indication: CHRONIC OBSTRUCTIVE PULMONARY DISEASE
     Dosage: 80/4.5 UG, TWO INHALATIONS, TWO TIMES A DAY
     Route: 055
     Dates: start: 2016

REACTIONS (11)
  - Off label use [Not Recovered/Not Resolved]
  - Device issue [Unknown]
  - Condition aggravated [Unknown]
  - Anxiety [Unknown]
  - Product use issue [Unknown]
  - Glucose tolerance impaired [Not Recovered/Not Resolved]
  - Circumstance or information capable of leading to medication error [Unknown]
  - Dyspnoea [Not Recovered/Not Resolved]
  - Hyperchlorhydria [Not Recovered/Not Resolved]
  - Dyspnoea exertional [Unknown]
  - Product use in unapproved indication [Not Recovered/Not Resolved]

NARRATIVE: CASE EVENT DATE: 201712
